FAERS Safety Report 14905749 (Version 1)
Quarter: 2018Q2

REPORT INFORMATION
  Report Type: Spontaneous
  Country: US (occurrence: US)
  Receive Date: 20180517
  Receipt Date: 20180517
  Transmission Date: 20180711
  Serious: No
  Sender: FDA-Public Use
  Company Number: US-SA-2018SA010920

PATIENT
  Age: 56 Year
  Sex: Male

DRUGS (5)
  1. LANTUS SOLOSTAR [Suspect]
     Active Substance: INSULIN GLARGINE
     Indication: TYPE 1 DIABETES MELLITUS
     Dosage: DOSE:37 UNIT(S)
     Route: 051
     Dates: start: 20091120
  2. LANTUS SOLOSTAR [Suspect]
     Active Substance: INSULIN GLARGINE
     Indication: TYPE 1 DIABETES MELLITUS
     Dosage: DOSE:39 UNIT(S)
     Route: 051
  3. SOLOSTAR [Suspect]
     Active Substance: DEVICE
     Indication: TYPE 1 DIABETES MELLITUS
     Dates: start: 20091120
  4. SOLOSTAR [Suspect]
     Active Substance: DEVICE
     Indication: TYPE 1 DIABETES MELLITUS
  5. NOVOLOG [Suspect]
     Active Substance: INSULIN ASPART
     Route: 065

REACTIONS (1)
  - Blood glucose increased [Unknown]

NARRATIVE: CASE EVENT DATE: 201711
